FAERS Safety Report 5984850-6 (Version None)
Quarter: 2008Q4

REPORT INFORMATION
  Report Type: 
  Country: None (occurrence: None)
  Receive Date: 20081208
  Receipt Date: 20081125
  Transmission Date: 20090506
  Serious: Yes (Hospitalization)
  Sender: FDA-Public Use
  Company Number: FR-ELI_LILLY_AND_COMPANY-FR200811005873

PATIENT
  Age: 45 Year
  Sex: Female

DRUGS (2)
  1. GEMCITABINE HCL [Suspect]
  2. DOCETAXEL [Suspect]

REACTIONS (1)
  - MYOCARDITIS [None]
